FAERS Safety Report 7991537-7 (Version None)
Quarter: 2011Q4

REPORT INFORMATION
  Report Type: 
  Country: None (occurrence: None)
  Receive Date: 20111219
  Receipt Date: 20111215
  Transmission Date: 20120403
  Serious: Yes (Hospitalization, Other)
  Sender: FDA-Public Use
  Company Number: CA-ROCHE-1019445

PATIENT
  Sex: Female
  Weight: 69.916 kg

DRUGS (10)
  1. METFORMIN HCL [Concomitant]
  2. TRIDURAL [Concomitant]
  3. PREDNISONE TAB [Concomitant]
  4. INSULIN [Concomitant]
  5. HYPOGLYCEMIC NOS [Concomitant]
     Route: 048
  6. LEVOTHYROXINE SODIUM [Concomitant]
  7. CELEBREX [Concomitant]
  8. TRAMADOL HCL [Concomitant]
  9. ACTEMRA [Suspect]
     Indication: RHEUMATOID ARTHRITIS
     Route: 042
     Dates: start: 20101101, end: 20111111
  10. LYRICA [Concomitant]

REACTIONS (2)
  - CEREBROVASCULAR ACCIDENT [None]
  - POLYCHONDRITIS [None]
